FAERS Safety Report 21402085 (Version 1)
Quarter: 2022Q4

REPORT INFORMATION
  Report Type: Spontaneous
  Country: US (occurrence: None)
  Receive Date: 20221003
  Receipt Date: 20221003
  Transmission Date: 20230112
  Serious: No
  Sender: FDA-Public Use
  Company Number: 2022A333406

PATIENT
  Sex: Male

DRUGS (6)
  1. FARXIGA [Suspect]
     Active Substance: DAPAGLIFLOZIN PROPANEDIOL
     Route: 048
  2. VICTOZA [Concomitant]
     Active Substance: LIRAGLUTIDE
  3. PROGRAF [Concomitant]
     Active Substance: TACROLIMUS
  4. METFORMIN [Concomitant]
     Active Substance: METFORMIN HYDROCHLORIDE
  5. GLIMEPIRIDE [Concomitant]
     Active Substance: GLIMEPIRIDE
  6. UNSPECIFIED INGREDIENT [Concomitant]
     Active Substance: UNSPECIFIED INGREDIENT

REACTIONS (8)
  - Asthenia [Unknown]
  - Coeliac disease [Unknown]
  - Diabetes mellitus [Unknown]
  - Gastric disorder [Unknown]
  - Illness [Unknown]
  - Malaise [Unknown]
  - Weight decreased [Unknown]
  - Laboratory test abnormal [Unknown]
